FAERS Safety Report 16527631 (Version 1)
Quarter: 2019Q3

REPORT INFORMATION
  Report Type: Report from Study
  Country: DE (occurrence: DE)
  Receive Date: 20190703
  Receipt Date: 20190703
  Transmission Date: 20191004
  Serious: Yes (Hospitalization, Other)
  Sender: FDA-Public Use
  Company Number: DE-BRISTOL-MYERS SQUIBB COMPANY-BMS-2019-063482

PATIENT
  Age: 82 Year
  Sex: Female
  Weight: 66 kg

DRUGS (7)
  1. ASPIRIN. [Suspect]
     Active Substance: ASPIRIN
     Indication: PRODUCT USED FOR UNKNOWN INDICATION
     Dosage: 100 MILLIGRAM, QD
     Route: 048
     Dates: start: 20190507, end: 20190525
  2. RAMIPRIL. [Concomitant]
     Active Substance: RAMIPRIL
     Indication: HYPERTENSION
     Dosage: 2.5 MILLIGRAM, BID
     Route: 048
     Dates: start: 20190425, end: 20190531
  3. PHENPROCOUMON [Suspect]
     Active Substance: PHENPROCOUMON
     Indication: PRODUCT USED FOR UNKNOWN INDICATION
     Dosage: UNK MILLIGRAM, QD
     Route: 048
     Dates: start: 20190507, end: 20190510
  4. CLOPIDOGREL BISULFATE. [Suspect]
     Active Substance: CLOPIDOGREL BISULFATE
     Indication: PRODUCT USED FOR UNKNOWN INDICATION
     Dosage: 75 MILLIGRAM, QD
     Route: 048
     Dates: start: 20190507, end: 20190531
  5. APIXABAN [Suspect]
     Active Substance: APIXABAN
     Indication: CEREBROVASCULAR ACCIDENT PROPHYLAXIS
     Dosage: 5 MILLIGRAM, BID
     Route: 048
     Dates: start: 20190510, end: 20190531
  6. DIGOXIN. [Concomitant]
     Active Substance: DIGOXIN
     Indication: HEART RATE
     Dosage: 0.25 MILLIGRAM, QD
     Route: 048
     Dates: start: 20190508, end: 20190531
  7. BISOPROLOL [Concomitant]
     Active Substance: BISOPROLOL
     Indication: HEART RATE
     Dosage: 5 MILLIGRAM, BID
     Route: 048
     Dates: start: 20190425, end: 20190531

REACTIONS (1)
  - Atrial fibrillation [Recovered/Resolved]

NARRATIVE: CASE EVENT DATE: 20190531
